FAERS Safety Report 23771315 (Version 6)
Quarter: 2025Q4

REPORT INFORMATION
  Report Type: Spontaneous
  Country: CA (occurrence: CA)
  Receive Date: 20240423
  Receipt Date: 20251104
  Transmission Date: 20260117
  Serious: Yes (Hospitalization, Other)
  Sender: CELLTRION
  Company Number: CA-CELLTRION INC.-2024CA009143

PATIENT

DRUGS (13)
  1. TRUXIMA [Suspect]
     Active Substance: RITUXIMAB-ABBS
     Indication: Rheumatoid arthritis
     Dosage: 1000 MG, DAY 1 AND15 / INF#5
     Route: 042
     Dates: start: 20230706
  2. TRUXIMA [Suspect]
     Active Substance: RITUXIMAB-ABBS
     Dosage: 1000 MG, Q2WEEKS EVERY6MONT (2 VIALS)
     Route: 042
     Dates: start: 20230706
  3. TRUXIMA [Suspect]
     Active Substance: RITUXIMAB-ABBS
     Dosage: 1000 MG DAY1, DAY 15
     Route: 042
     Dates: start: 20230706, end: 20250205
  4. PREDNISONE [Concomitant]
     Active Substance: PREDNISONE
     Dosage: 2 TABS ONCE DAILY
  5. METHOTREXATE [Concomitant]
     Active Substance: METHOTREXATE
     Dosage: 2.5 MG 6 TABS ONCE WEEKLY ON THURSDAYS
  6. HYDROCHLOROTHIAZIDE [Concomitant]
     Active Substance: HYDROCHLOROTHIAZIDE
     Dosage: 1 TAB ONCE DAILY
  7. FOLIC ACID [Concomitant]
     Active Substance: FOLIC ACID
     Dosage: ONCE WEEKLY THE DAY AFTER METHOTREXATE
  8. MELOXICAM [Concomitant]
     Active Substance: MELOXICAM
     Dosage: 1 TAB ONCE DAILY
  9. VIT D [VITAMIN D NOS] [Concomitant]
     Dosage: ONCE DAILY
  10. ACETAMINOPHEN [Concomitant]
     Active Substance: ACETAMINOPHEN
     Indication: Premedication
     Dosage: 1000 MG
  11. ACETAMINOPHEN [Concomitant]
     Active Substance: ACETAMINOPHEN
     Indication: Pain
  12. DIPHENHYDRAMINE [Concomitant]
     Active Substance: DIPHENHYDRAMINE
     Indication: Premedication
     Dosage: 50 MG
  13. METHYLPREDNISOLONE [Concomitant]
     Active Substance: METHYLPREDNISOLONE
     Indication: Premedication
     Dosage: 100 MG

REACTIONS (9)
  - Rheumatoid arthritis [Unknown]
  - Shoulder arthroplasty [Unknown]
  - General physical health deterioration [Unknown]
  - Hypertension [Unknown]
  - Urinary tract infection [Unknown]
  - Influenza like illness [Not Recovered/Not Resolved]
  - Pruritus [Recovered/Resolved]
  - Intentional overdose [Unknown]
  - Intentional dose omission [Unknown]

NARRATIVE: CASE EVENT DATE: 20241230
